FAERS Safety Report 14005293 (Version 1)
Quarter: 2017Q3

REPORT INFORMATION
  Report Type: Spontaneous
  Country: GB (occurrence: GB)
  Receive Date: 20170922
  Receipt Date: 20170922
  Transmission Date: 20171128
  Serious: Yes (Other)
  Sender: FDA-Public Use
  Company Number: GB-TORRENT-00015630

PATIENT
  Age: 62 Year
  Sex: Female
  Weight: 58 kg

DRUGS (10)
  1. FOSTAIR [Concomitant]
     Active Substance: BECLOMETHASONE\FORMOTEROL
  2. TIOTROPIUM [Concomitant]
     Active Substance: TIOTROPIUM
  3. MONTELUKAST [Suspect]
     Active Substance: MONTELUKAST SODIUM
  4. TERBUTALINE [Concomitant]
     Active Substance: TERBUTALINE
  5. BUDESONIDE. [Concomitant]
     Active Substance: BUDESONIDE
  6. PROCHLORPERAZINE. [Concomitant]
     Active Substance: PROCHLORPERAZINE
  7. SALBUTAMOL [Concomitant]
     Active Substance: ALBUTEROL
  8. ZOLMITRIPTAN. [Concomitant]
     Active Substance: ZOLMITRIPTAN
  9. KETOTIFEN [Concomitant]
     Active Substance: KETOTIFEN
  10. SALAMOL [Concomitant]
     Active Substance: ALBUTEROL

REACTIONS (2)
  - Depressed mood [Recovered/Resolved]
  - Migraine [Recovered/Resolved]

NARRATIVE: CASE EVENT DATE: 20170831
